FAERS Safety Report 7713776-2 (Version None)
Quarter: 2011Q3

REPORT INFORMATION
  Report Type: 
  Country: None (occurrence: None)
  Receive Date: 20110826
  Receipt Date: 20110824
  Transmission Date: 20111222
  Serious: No
  Sender: FDA-Public Use
  Company Number: US-PFIZER INC-2011196950

PATIENT
  Age: 82 Year
  Sex: Female
  Weight: 63.492 kg

DRUGS (2)
  1. COUMADIN [Concomitant]
     Indication: BLOOD DISORDER
     Dosage: UNK
  2. TOVIAZ [Suspect]
     Indication: URINARY INCONTINENCE
     Dosage: 4 MG, 1X/DAY
     Route: 048
     Dates: start: 20110601

REACTIONS (1)
  - INTERNATIONAL NORMALISED RATIO ABNORMAL [None]
